FAERS Safety Report 23593798 (Version 1)
Quarter: 2024Q1

REPORT INFORMATION
  Report Type: Spontaneous
  Country: SE (occurrence: SE)
  Receive Date: 20240304
  Receipt Date: 20240304
  Transmission Date: 20240409
  Serious: Yes (Hospitalization, Other)
  Sender: FDA-Public Use
  Company Number: SE-SA-2024SA068513

PATIENT
  Age: 42 Year
  Sex: Female

DRUGS (3)
  1. LEMTRADA [Suspect]
     Active Substance: ALEMTUZUMAB
     Indication: Multiple sclerosis
     Dosage: ACCORDING TO PRESCRIPTION, IN DEPARTMENT
     Route: 042
     Dates: start: 20150622, end: 201506
  2. LEMTRADA [Suspect]
     Active Substance: ALEMTUZUMAB
     Dosage: ACCORDING TO PRESCRIPTION, IN DEPARTMENT
     Route: 042
     Dates: start: 201611, end: 20161124
  3. LEVOTHYROXINE SODIUM [Concomitant]
     Active Substance: LEVOTHYROXINE SODIUM
     Dosage: 150 UG, QD (1X1)
     Route: 048

REACTIONS (3)
  - Type 1 diabetes mellitus [Recovering/Resolving]
  - Anti-IA2 antibody [Recovering/Resolving]
  - Anti-GAD antibody [Recovering/Resolving]

NARRATIVE: CASE EVENT DATE: 20240121
